FAERS Safety Report 9189518 (Version 1)
Quarter: 2013Q1

REPORT INFORMATION
  Report Type: Spontaneous
  Country: US (occurrence: None)
  Receive Date: 20130322
  Receipt Date: 20130322
  Transmission Date: 20140127
  Serious: Yes (Other)
  Sender: FDA-Public Use
  Company Number: None

PATIENT
  Sex: Male
  Weight: 54 kg

DRUGS (3)
  1. SERTRALINE [Suspect]
     Indication: ANXIETY
     Dosage: 50 MG  06/2012  ONCE DAILY  ORAL?100 MG 01/2013 (PM)
     Route: 048
     Dates: start: 201206
  2. SERTRALINE [Suspect]
     Indication: DEPRESSION
     Dosage: 50 MG  06/2012  ONCE DAILY  ORAL?100 MG 01/2013 (PM)
     Route: 048
     Dates: start: 201206
  3. LEVOTHYROXINE [Suspect]
     Indication: BLOOD THYROID STIMULATING HORMONE INCREASED
     Dosage: 75 MCG  ONCE DAILY (AM)  ORAL
     Route: 048
     Dates: start: 20130128

REACTIONS (1)
  - Cognitive disorder [None]
